FAERS Safety Report 23542652 (Version 1)
Quarter: 2024Q1

REPORT INFORMATION
  Report Type: Spontaneous
  Country: EG (occurrence: EG)
  Receive Date: 20240220
  Receipt Date: 20240220
  Transmission Date: 20240409
  Serious: No
  Sender: FDA-Public Use
  Company Number: EG-ALKEM LABORATORIES LIMITED-EG-ALKEM-2023-01526

PATIENT
  Age: 35 Year
  Sex: Female

DRUGS (2)
  1. TRIAMCINOLONE ACETONIDE [Suspect]
     Active Substance: TRIAMCINOLONE ACETONIDE
     Indication: Keloid scar
     Dosage: UNK
     Route: 026
  2. PENTOXIFYLLINE [Suspect]
     Active Substance: PENTOXIFYLLINE
     Indication: Keloid scar
     Dosage: UNK
     Route: 026

REACTIONS (2)
  - Telangiectasia [Unknown]
  - Product deposit [Unknown]
